FAERS Safety Report 9116849 (Version 1)
Quarter: 2013Q1

REPORT INFORMATION
  Report Type: Spontaneous
  Country: US (occurrence: US)
  Receive Date: 20130225
  Receipt Date: 20130225
  Transmission Date: 20140127
  Serious: No
  Sender: FDA-Public Use
  Company Number: US-BAYER-2013-023088

PATIENT
  Age: 80 Year
  Sex: Male

DRUGS (1)
  1. EOVIST [Suspect]
     Indication: LIVER SCAN
     Dosage: 9 ML, ONCE
     Dates: start: 20130221, end: 20130221

REACTIONS (2)
  - Nausea [None]
  - Vomiting [None]
